FAERS Safety Report 7864505-3 (Version None)
Quarter: 2011Q4

REPORT INFORMATION
  Report Type: 
  Country: None (occurrence: None)
  Receive Date: 20111025
  Receipt Date: 20111019
  Transmission Date: 20120403
  Serious: Yes (Other)
  Sender: FDA-Public Use
  Company Number: 2011SP049403

PATIENT
  Age: 40 Year
  Sex: Female

DRUGS (3)
  1. LEVOTHYROXINE SODIUM [Concomitant]
  2. CERAZETTE (DESOGESTREL /00754001/) [Suspect]
     Dosage: DF;QD, DF;QD
     Dates: start: 20110901
  3. CERAZETTE (DESOGESTREL /00754001/) [Suspect]
     Dosage: DF;QD, DF;QD
     Dates: start: 20110101

REACTIONS (2)
  - OVARIAN CYST [None]
  - MENORRHAGIA [None]
